FAERS Safety Report 10984985 (Version 2)
Quarter: 2015Q2

REPORT INFORMATION
  Report Type: Spontaneous
  Country: US (occurrence: US)
  Receive Date: 20150403
  Receipt Date: 20150514
  Transmission Date: 20150821
  Serious: Yes (Other)
  Sender: FDA-Public Use
  Company Number: US-ASTRAZENECA-2015SE30467

PATIENT
  Age: 11272 Day
  Sex: Female
  Weight: 127 kg

DRUGS (4)
  1. PULMICORT FLEXHALER [Suspect]
     Active Substance: BUDESONIDE
     Indication: ASPIRATION
     Dosage: 180 MCG ONE PUFF TWO TIMES A DAY
     Route: 055
     Dates: start: 20150322
  2. PULMICORT FLEXHALER [Suspect]
     Active Substance: BUDESONIDE
     Indication: PNEUMONIA
     Dosage: 180 MCG ONE PUFF TWO TIMES A DAY
     Route: 055
     Dates: start: 20150322
  3. PULMICORT FLEXHALER [Suspect]
     Active Substance: BUDESONIDE
     Indication: WHEEZING
     Dosage: 180 MCG ONE PUFF TWO TIMES A DAY
     Route: 055
     Dates: start: 20150322
  4. ALBUTEROL. [Concomitant]
     Active Substance: ALBUTEROL
     Indication: ASPIRATION
     Dosage: 2 PUFFS , REQUIRED
     Route: 055

REACTIONS (5)
  - Off label use [Unknown]
  - Exposure during pregnancy [Unknown]
  - Aspiration [Unknown]
  - Circumstance or information capable of leading to medication error [Unknown]
  - Intentional product misuse [Unknown]

NARRATIVE: CASE EVENT DATE: 20150322
